FAERS Safety Report 8326498-4 (Version None)
Quarter: 2012Q2

REPORT INFORMATION
  Report Type: 
  Country: None (occurrence: None)
  Receive Date: 20120501
  Receipt Date: 20090727
  Transmission Date: 20120825
  Serious: No
  Sender: FDA-Public Use
  Company Number: US-TEVA-2009009011

PATIENT
  Sex: Male
  Weight: 99.88 kg

DRUGS (6)
  1. ASPIRIN [Concomitant]
  2. LISINOPRIL [Concomitant]
  3. NUVIGIL [Suspect]
     Indication: SOMNOLENCE
     Dosage: 250 MILLIGRAM;
     Route: 048
     Dates: start: 20090601
  4. SIMVASTATIN [Concomitant]
  5. FLUOXETINE HYDROCHLORIDE [Concomitant]
  6. MULTI-VITAMIN [Concomitant]

REACTIONS (1)
  - PALPITATIONS [None]
